FAERS Safety Report 5578153-1 (Version None)
Quarter: 2007Q4

REPORT INFORMATION
  Report Type: 
  Country: None (occurrence: None)
  Receive Date: 20071227
  Receipt Date: 20071218
  Transmission Date: 20080405
  Serious: Yes (Death)
  Sender: FDA-Public Use
  Company Number: 2007002475

PATIENT
  Age: 69 Year
  Sex: Male

DRUGS (12)
  1. ERLOTINIB (ERLOTINIB HCL) (TABLET) (ERLOTINIB HCL) [Suspect]
     Indication: PANCREATIC CARCINOMA
     Dosage: (100 MG, QD), ORAL
     Route: 048
     Dates: start: 20070914, end: 20071207
  2. GEMCITABINE [Suspect]
     Indication: PANCREATIC CARCINOMA
     Dosage: (1450 MG/KG, 3X 4 WEEK), INTRAVENOUS
     Route: 042
     Dates: start: 20070914, end: 20071126
  3. GRANISETRON HYDROCHLORIDE (GRANISETRON HYDROCHLORIDE) [Concomitant]
  4. DEXAMETHASONE SODIUM PHOSPHATE [Concomitant]
  5. VALSARTAN [Concomitant]
  6. ASPIRIN [Concomitant]
  7. PIRENOXINE (PIRENOXINE) [Concomitant]
  8. LOXOPROFEN SODIUM (LOXOPROFEN SODIUM) [Concomitant]
  9. REBAMIPIDE (REBAMIPIDE) [Concomitant]
  10. DEXAMETHASONE TAB [Concomitant]
  11. TRIAMCINOLONE OINTMENT [Concomitant]
  12. PROCHLORPERAZINE MALEATE (PROCHLORPERAZINE MALEATE) [Concomitant]

REACTIONS (23)
  - ABDOMINAL DISTENSION [None]
  - ARTERIAL RUPTURE [None]
  - BLOOD ALBUMIN DECREASED [None]
  - BLOOD CREATININE INCREASED [None]
  - BLOOD GLUCOSE INCREASED [None]
  - BLOOD LACTATE DEHYDROGENASE INCREASED [None]
  - BLOOD POTASSIUM INCREASED [None]
  - BLOOD UREA INCREASED [None]
  - C-REACTIVE PROTEIN INCREASED [None]
  - CARDIAC ARREST [None]
  - DRY SKIN [None]
  - GASTROINTESTINAL HAEMORRHAGE [None]
  - HAEMATEMESIS [None]
  - INTRA-ABDOMINAL HAEMORRHAGE [None]
  - LOWER RESPIRATORY TRACT INFLAMMATION [None]
  - MALIGNANT NEOPLASM PROGRESSION [None]
  - METASTASES TO LUNG [None]
  - PANCREATIC CARCINOMA METASTATIC [None]
  - PROTEIN TOTAL DECREASED [None]
  - RASH [None]
  - RESPIRATORY ARREST [None]
  - STOMATITIS [None]
  - TUMOUR INVASION [None]
